FAERS Safety Report 7829730-6 (Version None)
Quarter: 2011Q4

REPORT INFORMATION
  Report Type: 
  Country: None (occurrence: None)
  Receive Date: 20111021
  Receipt Date: 20111013
  Transmission Date: 20120403
  Serious: Yes (Other)
  Sender: FDA-Public Use
  Company Number: DE-UCBSA-043394

PATIENT
  Sex: Male

DRUGS (4)
  1. LANTUS [Concomitant]
     Indication: TYPE 1 DIABETES MELLITUS
     Route: 064
  2. PETNIDAN [Concomitant]
     Indication: EPILEPSY
     Dosage: 250-0-500
     Route: 064
  3. NOVORAPID [Concomitant]
     Route: 064
  4. VIMPAT [Suspect]
     Indication: EPILEPSY
     Dosage: 100-0-50
     Route: 064

REACTIONS (2)
  - MATERNAL EXPOSURE DURING PREGNANCY [None]
  - PREMATURE BABY [None]
